FAERS Safety Report 7186717-7 (Version None)
Quarter: 2010Q4

REPORT INFORMATION
  Report Type: 
  Country: None (occurrence: None)
  Receive Date: 20101222
  Receipt Date: 20100625
  Transmission Date: 20110411
  Serious: No
  Sender: FDA-Public Use
  Company Number: US-AMGEN-KDL420709

PATIENT

DRUGS (4)
  1. ENBREL [Suspect]
     Indication: PRODUCT USED FOR UNKNOWN INDICATION
     Dosage: 50 MG, QWK
     Route: 058
  2. CELECOXIB [Concomitant]
     Dosage: 50 MG, UNK
  3. ASCORBIC ACID [Concomitant]
     Dosage: 250 MG, UNK
  4. ETHINYL ESTRADIOL/NORGESTIMATE [Concomitant]
     Dosage: UNK CI, UNK

REACTIONS (1)
  - DIZZINESS [None]
